FAERS Safety Report 10745788 (Version 1)
Quarter: 2015Q1

REPORT INFORMATION
  Report Type: Spontaneous
  Country: US (occurrence: None)
  Receive Date: 20150127
  Receipt Date: 20150127
  Transmission Date: 20150721
  Serious: Yes (Life-Threatening, Hospitalization)
  Sender: FDA-Public Use
  Company Number: None

PATIENT
  Age: 52 Year
  Sex: Female
  Weight: 61.24 kg

DRUGS (1)
  1. BOTOX [Suspect]
     Active Substance: ONABOTULINUMTOXINA
     Indication: SKIN WRINKLING
     Dosage: 40 UNITS FACIAL INJECTION

REACTIONS (12)
  - Dry eye [None]
  - Oropharyngeal pain [None]
  - Muscular weakness [None]
  - Dysphonia [None]
  - Contusion [None]
  - Hypoaesthesia [None]
  - Dysphagia [None]
  - Heart rate increased [None]
  - Swollen tongue [None]
  - Neck pain [None]
  - Rash [None]
  - Injection site extravasation [None]

NARRATIVE: CASE EVENT DATE: 20141201
